FAERS Safety Report 4879595-X (Version None)
Quarter: 2006Q1

REPORT INFORMATION
  Report Type: 
  Country: None (occurrence: None)
  Receive Date: 20060113
  Receipt Date: 20050527
  Transmission Date: 20060701
  Serious: Yes (Hospitalization)
  Sender: FDA-Public Use
  Company Number: US-BRISTOL-MYERS SQUIBB COMPANY-12985610

PATIENT
  Age: 68 Year
  Sex: Male
  Weight: 57 kg

DRUGS (8)
  1. CISPLATIN [Suspect]
     Indication: TONGUE NEOPLASM MALIGNANT STAGE UNSPECIFIED
     Route: 042
     Dates: start: 20050526, end: 20050526
  2. DECADRON [Concomitant]
     Indication: PREMEDICATION
     Route: 042
  3. KYTRIL [Concomitant]
     Indication: PREMEDICATION
     Route: 042
  4. LASIX [Concomitant]
     Indication: PREMEDICATION
     Route: 042
  5. FENTANYL [Concomitant]
  6. MEGESTROL [Concomitant]
  7. MILK OF MAGNESIA TAB [Concomitant]
  8. MSIR [Concomitant]

REACTIONS (1)
  - HYPERSENSITIVITY [None]
